FAERS Safety Report 7124819-1 (Version None)
Quarter: 2010Q4

REPORT INFORMATION
  Report Type: 
  Country: None (occurrence: None)
  Receive Date: 20101123
  Receipt Date: 20101123
  Transmission Date: 20110411
  Serious: Yes (Other)
  Sender: FDA-Public Use
  Company Number: None

PATIENT
  Age: 68 Year
  Sex: Male
  Weight: 68.0396 kg

DRUGS (1)
  1. CHANTIX [Suspect]
     Indication: SMOKING CESSATION THERAPY
     Dosage: 1 TABLET DAILY PO
     Route: 048
     Dates: start: 20100820, end: 20100912

REACTIONS (5)
  - INSOMNIA [None]
  - MOOD ALTERED [None]
  - PHARYNGEAL OEDEMA [None]
  - VISUAL IMPAIRMENT [None]
  - WHEEZING [None]
